FAERS Safety Report 10923880 (Version 2)
Quarter: 2015Q3

REPORT INFORMATION
  Report Type: Spontaneous
  Country: FR (occurrence: FR)
  Receive Date: 20150318
  Receipt Date: 20150813
  Transmission Date: 20151125
  Serious: Yes (Hospitalization)
  Sender: FDA-Public Use
  Company Number: FR-BIOGENIDEC-2015BI033073

PATIENT
  Age: 35 Year
  Sex: Female

DRUGS (2)
  1. ESTROGEN/PROGESTERONE [Concomitant]
     Active Substance: ESTROGENS\PROGESTERONE
     Route: 048
     Dates: start: 1995
  2. TYSABRI [Suspect]
     Active Substance: NATALIZUMAB
     Indication: RELAPSING-REMITTING MULTIPLE SCLEROSIS
     Route: 042
     Dates: start: 20070208

REACTIONS (4)
  - Vena cava thrombosis [Unknown]
  - Hepatic adenoma [Unknown]
  - Hepatic haematoma [Unknown]
  - Tumour haemorrhage [Unknown]

NARRATIVE: CASE EVENT DATE: 20150101
